FAERS Safety Report 6272086-3 (Version None)
Quarter: 2009Q3

REPORT INFORMATION
  Report Type: 
  Country: None (occurrence: None)
  Receive Date: 20090717
  Receipt Date: 20090708
  Transmission Date: 20100115
  Serious: Yes (Hospitalization)
  Sender: FDA-Public Use
  Company Number: B0567272A

PATIENT
  Age: 28 Year
  Sex: Male

DRUGS (1)
  1. AUGMENTIN '125' [Suspect]
     Indication: FEMUR FRACTURE
     Dosage: 3G PER DAY
     Route: 042
     Dates: start: 20090318, end: 20090319

REACTIONS (1)
  - INFECTION [None]
